FAERS Safety Report 8090709-3 (Version None)
Quarter: 2012Q1

REPORT INFORMATION
  Report Type: 
  Country: None (occurrence: None)
  Receive Date: 20120130
  Receipt Date: 20120126
  Transmission Date: 20120608
  Serious: Yes (Hospitalization, Other)
  Sender: FDA-Public Use
  Company Number: US-MERCK-1008USA00569

PATIENT
  Age: 62 Year
  Sex: Female
  Weight: 55 kg

DRUGS (5)
  1. ALENDRONATE SODIUM [Suspect]
     Indication: OSTEOPOROSIS
     Route: 048
     Dates: start: 20080211, end: 20090801
  2. FOSAMAX [Suspect]
     Route: 048
     Dates: end: 20091001
  3. LEVOXYL [Concomitant]
     Indication: HYPOTHYROIDISM
     Route: 048
     Dates: start: 20000201
  4. NORTRIPTYLINE [Concomitant]
     Route: 048
  5. FOSAMAX [Suspect]
     Indication: OSTEOPOROSIS
     Route: 048
     Dates: start: 20071201, end: 20080112

REACTIONS (31)
  - MYOCARDIAL INFARCTION [None]
  - OVARIAN CYST [None]
  - NASAL CONGESTION [None]
  - HAEMORRHOIDS [None]
  - DENTAL FISTULA [None]
  - PELVIC PAIN [None]
  - WEIGHT DECREASED [None]
  - UTERINE LEIOMYOMA [None]
  - BLOOD THYROID STIMULATING HORMONE DECREASED [None]
  - BLOOD CALCIUM INCREASED [None]
  - CHEST PAIN [None]
  - DEVICE FAILURE [None]
  - IMPAIRED HEALING [None]
  - MAJOR DEPRESSION [None]
  - TONSILLITIS STREPTOCOCCAL [None]
  - GINGIVAL BLEEDING [None]
  - ABSCESS ORAL [None]
  - GINGIVAL ABSCESS [None]
  - ARTERIOSCLEROSIS CORONARY ARTERY [None]
  - CORONARY ARTERY DISEASE [None]
  - IRRITABLE BOWEL SYNDROME [None]
  - ORAL INFECTION [None]
  - ORAL CAVITY FISTULA [None]
  - BACK PAIN [None]
  - EAR PAIN [None]
  - OSTEONECROSIS OF JAW [None]
  - BONE LOSS [None]
  - COUGH [None]
  - TOOTH DISORDER [None]
  - PERIODONTITIS [None]
  - HYPOACUSIS [None]
